FAERS Safety Report 5648681-9 (Version None)
Quarter: 2008Q1

REPORT INFORMATION
  Report Type: 
  Country: None (occurrence: None)
  Receive Date: 20080304
  Receipt Date: 20080228
  Transmission Date: 20080703
  Serious: Yes (Other)
  Sender: FDA-Public Use
  Company Number: B0506511A

PATIENT
  Age: 14 Year
  Sex: Male
  Weight: 38.9 kg

DRUGS (3)
  1. RELENZA [Suspect]
     Indication: INFLUENZA
     Dosage: 10MG TWICE PER DAY
     Route: 055
     Dates: start: 20080128, end: 20080129
  2. CALONAL [Concomitant]
     Indication: INFLUENZA
     Dosage: 200MG PER DAY
     Route: 048
     Dates: start: 20080128
  3. CHINESE HERBAL MEDICINE [Concomitant]

REACTIONS (2)
  - ABNORMAL BEHAVIOUR [None]
  - AMNESIA [None]
